FAERS Safety Report 4410444-X (Version None)
Quarter: 2004Q3

REPORT INFORMATION
  Report Type: 
  Country: None (occurrence: None)
  Receive Date: 20040728
  Receipt Date: 20040721
  Transmission Date: 20050211
  Serious: Yes (Hospitalization)
  Sender: FDA-Public Use
  Company Number: TH-MERCK-0407THA00006

PATIENT
  Age: 29 Year
  Sex: Female

DRUGS (1)
  1. VIOXX [Suspect]
     Indication: PAIN
     Route: 048
     Dates: start: 20040623

REACTIONS (2)
  - ANGIONEUROTIC OEDEMA [None]
  - CARDIAC FAILURE CONGESTIVE [None]
